FAERS Safety Report 10996572 (Version 1)
Quarter: 2015Q2

REPORT INFORMATION
  Report Type: Spontaneous
  Country: US (occurrence: None)
  Receive Date: 20150407
  Receipt Date: 20150407
  Transmission Date: 20150821
  Serious: Yes (Other)
  Sender: FDA-Public Use
  Company Number: None

PATIENT
  Age: 56 Year
  Sex: Female

DRUGS (3)
  1. LIPITOR [Concomitant]
     Active Substance: ATORVASTATIN CALCIUM
  2. LOSARTAN [Concomitant]
     Active Substance: LOSARTAN
  3. CIMZIA [Suspect]
     Active Substance: CERTOLIZUMAB PEGOL
     Indication: RHEUMATOID ARTHRITIS
     Dosage: SYRN, ONCE EVERY TWO WEEKS
     Route: 058
     Dates: start: 20140715

REACTIONS (1)
  - Renal cancer [None]

NARRATIVE: CASE EVENT DATE: 20150331
